FAERS Safety Report 18354489 (Version 1)
Quarter: 2020Q4

REPORT INFORMATION
  Report Type: Spontaneous
  Country: US (occurrence: US)
  Receive Date: 20201006
  Receipt Date: 20201006
  Transmission Date: 20210114
  Serious: No
  Sender: FDA-Public Use
  Company Number: None

PATIENT
  Age: 9 Year
  Sex: Female
  Weight: 51.75 kg

DRUGS (2)
  1. CHEWABLE VITAMINS AND SUPPLEMENTS [Concomitant]
  2. CONCERTA [Suspect]
     Active Substance: METHYLPHENIDATE HYDROCHLORIDE
     Indication: ATTENTION DEFICIT HYPERACTIVITY DISORDER
     Dosage: ?          QUANTITY:2 TABLET(S);?
     Route: 048
     Dates: start: 20200831, end: 20200915

REACTIONS (3)
  - Irritability [None]
  - Drug intolerance [None]
  - Nausea [None]

NARRATIVE: CASE EVENT DATE: 20200914
